FAERS Safety Report 5325546-3 (Version None)
Quarter: 2007Q2

REPORT INFORMATION
  Report Type: 
  Country: None (occurrence: None)
  Receive Date: 20070515
  Receipt Date: 20070503
  Transmission Date: 20071010
  Serious: Yes (Other)
  Sender: FDA-Public Use
  Company Number: US-PFIZER INC-2006071579

PATIENT
  Sex: Female
  Weight: 68 kg

DRUGS (14)
  1. CELEBREX [Suspect]
     Indication: FIBROMYALGIA
     Dates: start: 20010113, end: 20010726
  2. CELEBREX [Suspect]
     Indication: OSTEOARTHRITIS
  3. VIOXX [Suspect]
     Indication: ILL-DEFINED DISORDER
     Dosage: TEXT:UNKNOWN-FREQ:UNKNOWN
     Route: 065
     Dates: start: 20000712, end: 20010726
  4. AGGRENOX [Concomitant]
     Indication: ANTICOAGULANT THERAPY
  5. DEPAKOTE [Concomitant]
     Indication: MIGRAINE
  6. TIZANIDINE HCL [Concomitant]
     Indication: TREMOR
  7. NEURONTIN [Concomitant]
     Indication: PAIN
  8. LISINOPRIL [Concomitant]
     Indication: HYPERTENSION
  9. DETROL LA [Concomitant]
     Indication: INCONTINENCE
  10. ZOCOR [Concomitant]
     Indication: BLOOD CHOLESTEROL
  11. LORAZEPAM [Concomitant]
     Indication: ANXIETY
  12. LEXAPRO [Concomitant]
     Indication: DEPRESSION
  13. ALL OTHER THERAPEUTIC PRODUCTS [Concomitant]
  14. NITROGLYCERIN [Concomitant]
     Indication: ANGINA PECTORIS

REACTIONS (12)
  - AMNESIA [None]
  - ANEURYSM [None]
  - ANXIETY [None]
  - AORTIC VALVE INCOMPETENCE [None]
  - CEREBROVASCULAR ACCIDENT [None]
  - DEPRESSION [None]
  - HEADACHE [None]
  - HEART VALVE INSUFFICIENCY [None]
  - MITRAL VALVE INCOMPETENCE [None]
  - SUBCLAVIAN ARTERY STENOSIS [None]
  - TRANSIENT ISCHAEMIC ATTACK [None]
  - TRICUSPID VALVE INCOMPETENCE [None]
